FAERS Safety Report 13700687 (Version 1)
Quarter: 2017Q2

REPORT INFORMATION
  Report Type: Spontaneous
  Country: US (occurrence: US)
  Receive Date: 20170626
  Receipt Date: 20170626
  Transmission Date: 20170830
  Serious: Yes (Hospitalization)
  Sender: FDA-Public Use
  Company Number: None

PATIENT
  Age: 101 Year
  Sex: Male

DRUGS (1)
  1. ASPIRIN. [Suspect]
     Active Substance: ASPIRIN
     Indication: CEREBROVASCULAR ACCIDENT PROPHYLAXIS
     Route: 048
     Dates: start: 20170216, end: 20170511

REACTIONS (5)
  - Microcytic anaemia [None]
  - Syncope [None]
  - Occult blood positive [None]
  - Gastric haemorrhage [None]
  - Orthostatic hypotension [None]

NARRATIVE: CASE EVENT DATE: 20170511
